FAERS Safety Report 7492795-8 (Version None)
Quarter: 2011Q2

REPORT INFORMATION
  Report Type: 
  Country: None (occurrence: None)
  Receive Date: 20110519
  Receipt Date: 20110510
  Transmission Date: 20111010
  Serious: Yes (Life-Threatening, Other)
  Sender: FDA-Public Use
  Company Number: US-BAYER-2011-040084

PATIENT
  Age: 36 Year
  Sex: Female

DRUGS (1)
  1. AVELOX [Suspect]
     Indication: RESPIRATORY TRACT INFECTION
     Dosage: 400 MG, UNK
     Route: 048
     Dates: start: 20110426, end: 20110426

REACTIONS (7)
  - NAUSEA [None]
  - VOMITING [None]
  - PRURITUS [None]
  - SWELLING [None]
  - PARAESTHESIA [None]
  - HYPERSENSITIVITY [None]
  - URINARY INCONTINENCE [None]
